FAERS Safety Report 4748573-3 (Version None)
Quarter: 2005Q3

REPORT INFORMATION
  Report Type: 
  Country: None (occurrence: None)
  Receive Date: 20050818
  Receipt Date: 20050818
  Transmission Date: 20060218
  Serious: No
  Sender: FDA-Public Use
  Company Number: None

PATIENT
  Sex: Female
  Weight: 54.4316 kg

DRUGS (2)
  1. FLUOXETINE [Suspect]
     Indication: PANIC DISORDER
     Dates: start: 20050608
  2. FLUOXETINE [Suspect]
     Indication: POST-TRAUMATIC STRESS DISORDER
     Dates: start: 20050608

REACTIONS (1)
  - HEADACHE [None]
